FAERS Safety Report 5186414-3 (Version None)
Quarter: 2006Q4

REPORT INFORMATION
  Report Type: 
  Country: None (occurrence: None)
  Receive Date: 20061213
  Receipt Date: 20061201
  Transmission Date: 20070319
  Serious: Yes (Other)
  Sender: FDA-Public Use
  Company Number: 2006145479

PATIENT
  Age: 66 Year
  Sex: Male

DRUGS (2)
  1. XALATAN [Suspect]
     Indication: GLAUCOMA
     Dosage: 3 MCG (1.5 MCG, 2 IN 1 D), OPHTHLAMIC
     Route: 047
     Dates: start: 20060501, end: 20061101
  2. OCCUPRESS (CARTEOLOL HYDROCHLORIDE) [Concomitant]

REACTIONS (2)
  - CATARACT OPERATION [None]
  - NO ADVERSE EFFECT [None]
